FAERS Safety Report 9016318 (Version 1)
Quarter: 2013Q1

REPORT INFORMATION
  Report Type: Spontaneous
  Country: US (occurrence: US)
  Receive Date: 20130116
  Receipt Date: 20130116
  Transmission Date: 20140127
  Serious: Yes (Other)
  Sender: FDA-Public Use
  Company Number: US-009507513-1301USA004118

PATIENT
  Age: 71 Year
  Sex: Female

DRUGS (3)
  1. SINGULAIR [Suspect]
     Dosage: UNK
  2. MUCINEX [Suspect]
     Indication: UPPER RESPIRATORY TRACT CONGESTION
     Dosage: 1200 MG, BID, 1 WEEK 3 DAYS UNTIL NOT CONTINUING
     Route: 048
  3. MUCINEX [Suspect]
     Dosage: 600 MG, TOTAL
     Route: 048

REACTIONS (3)
  - Fear [Unknown]
  - Hallucination, visual [Unknown]
  - Abnormal dreams [Unknown]
